FAERS Safety Report 12552134 (Version 2)
Quarter: 2016Q3

REPORT INFORMATION
  Report Type: Spontaneous
  Country: GB (occurrence: GB)
  Receive Date: 20160713
  Receipt Date: 20160719
  Transmission Date: 20161109
  Serious: Yes (Other)
  Sender: FDA-Public Use
  Company Number: GB-MYLANLABS-2016M1028100

PATIENT

DRUGS (6)
  1. PAROXETINE. [Suspect]
     Active Substance: PAROXETINE
     Indication: PRODUCT USED FOR UNKNOWN INDICATION
     Dosage: UNK
     Route: 065
     Dates: start: 19961223
  2. PAROXETINE. [Suspect]
     Active Substance: PAROXETINE
     Dosage: 20 MG, QD (20 MG, QD)
     Route: 065
     Dates: start: 20000914, end: 20160526
  3. PAROXETINE. [Suspect]
     Active Substance: PAROXETINE
     Dosage: 20 MG, BID
     Route: 065
     Dates: start: 19990401, end: 20000816
  4. BENDROFLUMETHIAZIDE [Concomitant]
     Active Substance: BENDROFLUMETHIAZIDE
     Indication: PRODUCT USED FOR UNKNOWN INDICATION
     Dosage: UNK
     Route: 065
  5. PRAVASTATIN. [Concomitant]
     Active Substance: PRAVASTATIN
     Indication: PRODUCT USED FOR UNKNOWN INDICATION
     Dosage: UNK
  6. PERINDOPRIL [Concomitant]
     Active Substance: PERINDOPRIL
     Indication: PRODUCT USED FOR UNKNOWN INDICATION
     Dosage: UNK

REACTIONS (23)
  - Depression [Unknown]
  - Anxiety [Unknown]
  - Paranoia [Unknown]
  - Tension [Unknown]
  - Aggression [Unknown]
  - Muscle twitching [Unknown]
  - Panic attack [Unknown]
  - Epigastric discomfort [Unknown]
  - Palpitations [Unknown]
  - Decreased interest [Unknown]
  - Chest discomfort [Unknown]
  - Depressed mood [Unknown]
  - Memory impairment [Unknown]
  - Pruritus [Unknown]
  - Psychiatric symptom [Unknown]
  - Tearfulness [Unknown]
  - Sexual dysfunction [Unknown]
  - Irritability [Unknown]
  - Disturbance in attention [Unknown]
  - Dizziness [Unknown]
  - Respiratory rate increased [Unknown]
  - Suicidal ideation [Unknown]
  - Drug withdrawal syndrome [Unknown]

NARRATIVE: CASE EVENT DATE: 19970107
